FAERS Safety Report 6942506-7 (Version None)
Quarter: 2010Q3

REPORT INFORMATION
  Report Type: 
  Country: None (occurrence: None)
  Receive Date: 20100826
  Receipt Date: 20100818
  Transmission Date: 20110219
  Serious: Yes (Other)
  Sender: FDA-Public Use
  Company Number: US-ELI_LILLY_AND_COMPANY-US201006004201

PATIENT
  Sex: Male

DRUGS (10)
  1. HUMALOG [Suspect]
     Indication: DIABETES MELLITUS
     Dosage: 8 U, EACH MORNING
  2. HUMALOG [Suspect]
     Dosage: 10 U, OTHER
  3. HUMALOG [Suspect]
     Dosage: 12 U, EACH EVENING
  4. LANTUS [Concomitant]
  5. COREG [Concomitant]
  6. LIPITOR [Concomitant]
  7. PLAVIX [Concomitant]
  8. NORVASC [Concomitant]
  9. LISINOPRIL [Concomitant]
  10. HYDRALAZINE [Concomitant]

REACTIONS (3)
  - DIABETIC RETINOPATHY [None]
  - POOR QUALITY DRUG ADMINISTERED [None]
  - SKIN ODOUR ABNORMAL [None]
